FAERS Safety Report 15790739 (Version 1)
Quarter: 2019Q1

REPORT INFORMATION
  Report Type: Spontaneous
  Country: US (occurrence: US)
  Receive Date: 20190104
  Receipt Date: 20190104
  Transmission Date: 20190417
  Serious: Yes (Other)
  Sender: FDA-Public Use
  Company Number: US-ELI_LILLY_AND_COMPANY-US201901000372

PATIENT
  Sex: Male

DRUGS (4)
  1. NEULASTA [Concomitant]
     Active Substance: PEGFILGRASTIM
     Indication: PRODUCT USED FOR UNKNOWN INDICATION
     Dosage: UNK, UNKNOWN
     Route: 065
  2. PEGFILGRASTIM [Concomitant]
     Active Substance: PEGFILGRASTIM
     Indication: PRODUCT USED FOR UNKNOWN INDICATION
     Dosage: UNK
     Dates: end: 20181102
  3. CARBOPLATIN. [Concomitant]
     Active Substance: CARBOPLATIN
     Indication: BLADDER TRANSITIONAL CELL CARCINOMA
     Dosage: UNK UNK, UNKNOWN
     Route: 065
     Dates: end: 20181025
  4. GEMZAR [Suspect]
     Active Substance: GEMCITABINE HYDROCHLORIDE
     Indication: BLADDER TRANSITIONAL CELL CARCINOMA
     Dosage: UNK UNK, UNKNOWN
     Route: 065
     Dates: end: 20181101

REACTIONS (13)
  - Ureteric obstruction [Unknown]
  - Fibrosis [Unknown]
  - Nasopharyngitis [Unknown]
  - Off label use [Unknown]
  - Bone pain [Unknown]
  - Chest pain [Unknown]
  - Pain [Unknown]
  - Joint swelling [Unknown]
  - Dyspnoea [Unknown]
  - Arthralgia [Unknown]
  - Hypotension [Unknown]
  - Fatigue [Unknown]
  - Malignant neoplasm progression [Unknown]

NARRATIVE: CASE EVENT DATE: 20181211
